FAERS Safety Report 25046730 (Version 2)
Quarter: 2025Q1

REPORT INFORMATION
  Report Type: Report from Study
  Country: CA (occurrence: CA)
  Receive Date: 20250306
  Receipt Date: 20250318
  Transmission Date: 20250409
  Serious: Yes (Other)
  Sender: TAKEDA
  Company Number: CA-TAKEDA-2024TUS038894

PATIENT
  Age: 37 Year
  Sex: Female

DRUGS (6)
  1. VEDOLIZUMAB [Suspect]
     Active Substance: VEDOLIZUMAB
     Indication: Crohn^s disease
  2. VEDOLIZUMAB [Suspect]
     Active Substance: VEDOLIZUMAB
  3. VEDOLIZUMAB [Suspect]
     Active Substance: VEDOLIZUMAB
  4. VEDOLIZUMAB [Suspect]
     Active Substance: VEDOLIZUMAB
  5. INFLIXIMAB [Suspect]
     Active Substance: INFLIXIMAB
     Indication: Product used for unknown indication
  6. PREDNISONE [Concomitant]
     Active Substance: PREDNISONE

REACTIONS (22)
  - Rheumatoid arthritis [Unknown]
  - Anxiety [Unknown]
  - Feeling hot [Unknown]
  - Pain [Unknown]
  - Heart rate increased [Unknown]
  - Abdominal pain [Not Recovered/Not Resolved]
  - Vision blurred [Recovered/Resolved]
  - Arthralgia [Unknown]
  - Headache [Not Recovered/Not Resolved]
  - Fatigue [Not Recovered/Not Resolved]
  - Head discomfort [Not Recovered/Not Resolved]
  - Rash macular [Unknown]
  - Infection [Not Recovered/Not Resolved]
  - Gastrointestinal pain [Not Recovered/Not Resolved]
  - Disturbance in attention [Unknown]
  - Skin reaction [Unknown]
  - Erythema nodosum [Not Recovered/Not Resolved]
  - Drug ineffective [Unknown]
  - Dyspnoea [Not Recovered/Not Resolved]
  - Acne [Unknown]
  - Abdominal distension [Unknown]
  - Pruritus [Not Recovered/Not Resolved]

NARRATIVE: CASE EVENT DATE: 20240421
